FAERS Safety Report 14283637 (Version 2)
Quarter: 2017Q4

REPORT INFORMATION
  Report Type: Report from Study
  Country: None (occurrence: BR)
  Receive Date: 20171213
  Receipt Date: 20171213
  Transmission Date: 20180321
  Serious: Yes (Hospitalization, Other)
  Sender: FDA-Public Use
  Company Number: BR-ABBVIE-17K-020-2188127-00

PATIENT
  Sex: Male
  Weight: 83 kg

DRUGS (3)
  1. CONCOR [Concomitant]
     Active Substance: BISOPROLOL FUMARATE
     Indication: BLOOD PRESSURE MEASUREMENT
  2. LIVALO [Concomitant]
     Active Substance: PITAVASTATIN CALCIUM
     Indication: BLOOD CHOLESTEROL
  3. HUMIRA [Suspect]
     Active Substance: ADALIMUMAB
     Indication: ANKYLOSING SPONDYLITIS
     Route: 058
     Dates: start: 20140601, end: 201706

REACTIONS (3)
  - Pyrexia [Recovered/Resolved]
  - Prostatic specific antigen abnormal [Unknown]
  - Biopsy prostate abnormal [Unknown]

NARRATIVE: CASE EVENT DATE: 2017
